FAERS Safety Report 9993243 (Version 2)
Quarter: 2014Q2

REPORT INFORMATION
  Report Type: Spontaneous
  Country: JP (occurrence: JP)
  Receive Date: 20140310
  Receipt Date: 20140605
  Transmission Date: 20141212
  Serious: Yes (Other)
  Sender: FDA-Public Use
  Company Number: JP-VERTEX PHARMACEUTICALS INC-2014-001117

PATIENT
  Age: 69 Year
  Sex: Male

DRUGS (3)
  1. TELAVIC [Suspect]
     Indication: HEPATITIS C
     Dosage: 2250 MG, QD
     Route: 048
     Dates: start: 20130206, end: 20130311
  2. PEGINTRON [Suspect]
     Indication: HEPATITIS C
     Dosage: 100 ?G, UNK
     Route: 058
     Dates: start: 20130206, end: 201307
  3. REBETOL [Suspect]
     Indication: HEPATITIS C
     Dosage: 800 TO 200 MG/DAY
     Route: 048
     Dates: start: 20130206, end: 201307

REACTIONS (6)
  - Retinal haemorrhage [Recovered/Resolved]
  - Lymphocyte count decreased [Recovered/Resolved]
  - Anaemia [Recovered/Resolved]
  - Hyperuricaemia [Recovered/Resolved]
  - Diarrhoea [Recovered/Resolved]
  - Pruritus [Recovered/Resolved]
